FAERS Safety Report 6168922-1 (Version None)
Quarter: 2009Q2

REPORT INFORMATION
  Report Type: 
  Country: None (occurrence: None)
  Receive Date: 20090427
  Receipt Date: 20090416
  Transmission Date: 20091009
  Serious: Yes (Other)
  Sender: FDA-Public Use
  Company Number: PHEH2009US02472

PATIENT
  Sex: Female

DRUGS (5)
  1. GLEEVEC [Suspect]
     Indication: CHRONIC MYELOID LEUKAEMIA
     Dosage: 400 MG, QD
     Route: 048
     Dates: start: 20080510, end: 20090108
  2. VALTREX [Concomitant]
     Indication: INFECTION
     Dosage: 100 MG BID FOR ONE WEEK
     Dates: end: 20090110
  3. NASONEX [Concomitant]
     Indication: SINUSITIS
     Dosage: UNK
  4. AUGMENTIN                               /SCH/ [Concomitant]
     Indication: SINUSITIS
     Dosage: INTERMITTENT
  5. SYNTHROID [Concomitant]
     Indication: HYPOTHYROIDISM
     Dosage: UNK

REACTIONS (13)
  - ANAEMIA [None]
  - ASPARTATE AMINOTRANSFERASE INCREASED [None]
  - AUTOIMMUNE HEPATITIS [None]
  - BIOPSY LIVER [None]
  - BLOOD ALKALINE PHOSPHATASE [None]
  - BLOOD CALCIUM DECREASED [None]
  - BLOOD CHLORIDE INCREASED [None]
  - BLOOD GLUCOSE INCREASED [None]
  - FOLATE DEFICIENCY [None]
  - HERPES VIRUS INFECTION [None]
  - HYPOTHYROIDISM [None]
  - LIVER FUNCTION TEST ABNORMAL [None]
  - SINUSITIS [None]
